FAERS Safety Report 6588347-4 (Version None)
Quarter: 2010Q1

REPORT INFORMATION
  Report Type: 
  Country: None (occurrence: None)
  Receive Date: 20100217
  Receipt Date: 20100217
  Transmission Date: 20100710
  Serious: Yes (Hospitalization)
  Sender: FDA-Public Use
  Company Number: None

PATIENT
  Age: 48 Year
  Sex: Male
  Weight: 100.1 kg

DRUGS (1)
  1. TRAMADOL HCL [Suspect]
     Indication: PAIN
     Dosage: 1 MG TID PO
     Route: 048
     Dates: start: 20090114, end: 20091008

REACTIONS (3)
  - GRAND MAL CONVULSION [None]
  - NEURALGIA [None]
  - PAIN IN EXTREMITY [None]
